FAERS Safety Report 25322917 (Version 1)
Quarter: 2025Q2

REPORT INFORMATION
  Report Type: Spontaneous
  Country: FR (occurrence: FR)
  Receive Date: 20250516
  Receipt Date: 20250516
  Transmission Date: 20250716
  Serious: Yes (Hospitalization, Other)
  Sender: CHEPLAPHARM
  Company Number: None

PATIENT
  Age: 77 Year
  Sex: Female
  Weight: 83 kg

DRUGS (12)
  1. OLANZAPINE [Suspect]
     Active Substance: OLANZAPINE
     Indication: Cognitive disorder
     Route: 048
     Dates: end: 20240702
  2. ABILIFY [Suspect]
     Active Substance: ARIPIPRAZOLE
     Indication: Cognitive disorder
     Dosage: 5 MG/DAY, THEN FROM AUGUST 2024, 10 MG/DAY?DAILY DOSE: 10 MILLIGRAM
     Route: 048
     Dates: start: 20240803
  3. ABILIFY [Suspect]
     Active Substance: ARIPIPRAZOLE
     Indication: Cognitive disorder
     Dosage: DOSE NOT CHANGED?DAILY DOSE: 5 MILLIGRAM
     Route: 048
  4. ESCITALOPRAM [Suspect]
     Active Substance: ESCITALOPRAM OXALATE
     Indication: Mixed anxiety and depressive disorder
     Dosage: DAILY DOSE: 5 MILLIGRAM
     Route: 048
     Dates: start: 20240703
  5. ESCITALOPRAM [Suspect]
     Active Substance: ESCITALOPRAM OXALATE
     Indication: Mixed anxiety and depressive disorder
     Dosage: DAILY DOSE: 10 MILLIGRAM
     Route: 048
     Dates: end: 20250325
  6. ESCITALOPRAM [Suspect]
     Active Substance: ESCITALOPRAM OXALATE
     Indication: Mixed anxiety and depressive disorder
     Dosage: DAILY DOSE: 10 MILLIGRAM
     Route: 048
  7. MIRTAZAPINE [Concomitant]
     Active Substance: MIRTAZAPINE
     Dosage: DAILY DOSE: 30 MILLIGRAM
     Dates: start: 202503
  8. BENSERAZIDE HYDROCHLORIDE\LEVODOPA [Concomitant]
     Active Substance: BENSERAZIDE HYDROCHLORIDE\LEVODOPA
     Indication: Dopaminergic drug therapy
     Dosage: DAILY DOSE: 3 DOSAGE FORM
  9. BISOPROLOL [Concomitant]
     Active Substance: BISOPROLOL
     Dosage: DAILY DOSE: 2.5 MILLIGRAM
  10. CHOLECALCIFEROL [Concomitant]
     Active Substance: CHOLECALCIFEROL
     Dosage: 1 VIAL/MONTH?DAILY DOSE: 1 DOSAGE FORM
  11. EBASTINE [Concomitant]
     Active Substance: EBASTINE
     Dosage: DAILY DOSE: 5 MILLIGRAM
  12. ACETAMINOPHEN [Concomitant]
     Active Substance: ACETAMINOPHEN

REACTIONS (2)
  - Extrapyramidal disorder [Not Recovered/Not Resolved]
  - Delirium [Unknown]

NARRATIVE: CASE EVENT DATE: 20240601
